FAERS Safety Report 4827853-7 (Version None)
Quarter: 2005Q4

REPORT INFORMATION
  Report Type: 
  Country: None (occurrence: None)
  Receive Date: 20051114
  Receipt Date: 20051114
  Transmission Date: 20060501
  Serious: Yes (Life-Threatening)
  Sender: FDA-Public Use
  Company Number: None

PATIENT
  Age: 86 Year
  Sex: Female

DRUGS (10)
  1. PRIMAXIN [Suspect]
     Indication: BACTERIA SPUTUM IDENTIFIED
     Dosage: 250 MG   Q6H   IV
     Route: 042
     Dates: start: 20050923, end: 20050928
  2. LANOXIN [Concomitant]
  3. ZINC OXIDE [Concomitant]
  4. PREVACID [Concomitant]
  5. NAHCO3 [Concomitant]
  6. ATROVENT [Concomitant]
  7. LASIX [Concomitant]
  8. PROVENTIL [Concomitant]
  9. HESPAN [Concomitant]
  10. ARGATROBAN [Concomitant]

REACTIONS (1)
  - THROMBOCYTOPENIA [None]
